FAERS Safety Report 9419393 (Version 4)
Quarter: 2014Q2

REPORT INFORMATION
  Report Type: Spontaneous
  Country: US (occurrence: US)
  Receive Date: 20130725
  Receipt Date: 20140606
  Transmission Date: 20141212
  Serious: Yes (Life-Threatening, Hospitalization, Other)
  Sender: FDA-Public Use
  Company Number: US-MERCK-1307USA013635

PATIENT
  Sex: Female
  Weight: 80.73 kg

DRUGS (13)
  1. JANUVIA [Suspect]
     Indication: TYPE 2 DIABETES MELLITUS
     Dosage: 50 MG, QD
     Route: 048
     Dates: start: 20090921, end: 20100828
  2. JANUVIA [Suspect]
     Dosage: 100 MG, UNK
     Route: 048
  3. VICTOZA [Suspect]
     Indication: TYPE 2 DIABETES MELLITUS
     Dosage: 18MG/3ML, QD
     Route: 058
     Dates: start: 20110418, end: 20111203
  4. VICTOZA [Suspect]
     Dosage: 1.2 MG, QD
     Route: 058
  5. VITAMINS (UNSPECIFIED) [Concomitant]
     Dosage: UNK UNK, QD
     Dates: start: 1996
  6. ASCORBIC ACID [Concomitant]
     Dosage: UNK UNK, QD
     Dates: start: 1996
  7. CYANOCOBALAMIN [Concomitant]
     Dosage: UNK
     Dates: start: 1996
  8. PYRIDOXINE [Concomitant]
     Dosage: UNK
     Dates: start: 1996
  9. ACETAMINOPHEN (+) BUTALBITAL (+) CAFFEINE (+) CODEINE PHOSPHATE [Concomitant]
     Indication: MIGRAINE
     Dosage: UNK
     Dates: start: 2006
  10. METFORMIN [Concomitant]
     Indication: TYPE 2 DIABETES MELLITUS
     Dosage: 1000 MG, BID
     Route: 048
  11. ZYRTEC [Concomitant]
     Indication: HYPERSENSITIVITY
     Dosage: 10 MG, QD
     Route: 048
  12. FIORICET [Concomitant]
     Indication: MIGRAINE
     Dosage: UNK, PRN
  13. RELPAX [Concomitant]
     Indication: MIGRAINE
     Dosage: 40 MG, PRN
     Route: 048

REACTIONS (34)
  - Pancreatic carcinoma [Unknown]
  - Pancreaticoduodenectomy [Unknown]
  - Metastatic neoplasm [Unknown]
  - Mammoplasty [Unknown]
  - Post procedural haematoma [Unknown]
  - Gingivitis [Unknown]
  - Iron deficiency anaemia [Unknown]
  - Post procedural haematoma [Unknown]
  - Biliary dilatation [Unknown]
  - Pancreatic duct dilatation [Unknown]
  - Pancreatic atrophy [Unknown]
  - Jejunostomy refashioning [Unknown]
  - Autoimmune thyroiditis [Unknown]
  - Joint injury [Unknown]
  - Ligament operation [Unknown]
  - Anxiety [Unknown]
  - Depression [Unknown]
  - Benign neoplasm of thyroid gland [Unknown]
  - Carpal tunnel decompression [Unknown]
  - Shoulder operation [Unknown]
  - Lymphadenopathy [Unknown]
  - Choledochoenterostomy [Unknown]
  - Haemangioma of liver [Unknown]
  - Splenic lesion [Unknown]
  - Splenic artery aneurysm [Unknown]
  - Breast disorder female [Unknown]
  - Endometrial ablation [Unknown]
  - Gastrooesophageal reflux disease [Unknown]
  - Fatigue [Unknown]
  - Malaise [Unknown]
  - Headache [Unknown]
  - Headache [Unknown]
  - Liver function test abnormal [Unknown]
  - Diarrhoea [Unknown]
